FAERS Safety Report 9821045 (Version 1)
Quarter: 2013Q4

REPORT INFORMATION
  Report Type: Spontaneous
  Country: US (occurrence: None)
  Receive Date: 20131028
  Receipt Date: 20131028
  Transmission Date: 20140711
  Serious: Yes (Other)
  Sender: FDA-Public Use
  Company Number: 2013US001679

PATIENT
  Age: 66 Year
  Sex: Male
  Weight: 111 kg

DRUGS (13)
  1. ICLUSIG (PONATINIB) TABLET, 45MG [Suspect]
     Indication: CHRONIC MYELOID LEUKAEMIA
     Route: 048
     Dates: start: 20130509
  2. ATENOLOL (ATENOLOL) [Concomitant]
  3. PERCOCET (OXYCODONE HYDROCHLORIDE, PARACETAMOL) [Concomitant]
  4. OXYCODONE (OXYCODONE) [Concomitant]
  5. MIRTAZAPINE (MIRTAZAPINE) [Concomitant]
  6. AMLODIPINE (AMLODIPINE) [Concomitant]
  7. COMPAZINE (PROCHLORPERAZINE MALEATE) [Concomitant]
  8. TAMSULOSIN (TAMSULOSIN) [Concomitant]
  9. KCL (KCL) [Concomitant]
  10. ALLOPURINOL (ALLOPURINOL) [Concomitant]
  11. GLUCOSAMINE (GLUCOSAMINE) [Concomitant]
  12. ALTACE (RAMIPRIL) [Concomitant]
  13. FLUTICASONE PROPIONATE (FLUTICASONE PROPIONATE) [Concomitant]

REACTIONS (1)
  - Arthralgia [None]
